FAERS Safety Report 8076991-7 (Version None)
Quarter: 2012Q1

REPORT INFORMATION
  Report Type: 
  Country: None (occurrence: None)
  Receive Date: 20120127
  Receipt Date: 20111123
  Transmission Date: 20120608
  Serious: Yes (Hospitalization, Other)
  Sender: FDA-Public Use
  Company Number: FR-GLAXOSMITHKLINE-B0765301A

PATIENT
  Sex: Male
  Weight: 65 kg

DRUGS (2)
  1. PANTOPRAZOLE SODIUM [Concomitant]
  2. ARIXTRA [Suspect]
     Indication: THROMBOPHLEBITIS SUPERFICIAL
     Dosage: 2.5MG PER DAY
     Route: 058
     Dates: start: 20110728, end: 20110802

REACTIONS (2)
  - GASTRIC HAEMORRHAGE [None]
  - HAEMATEMESIS [None]
